FAERS Safety Report 4514985-6 (Version None)
Quarter: 2004Q4

REPORT INFORMATION
  Report Type: 
  Country: None (occurrence: None)
  Receive Date: 20041129
  Receipt Date: 20041129
  Transmission Date: 20050328
  Serious: Yes (Other)
  Sender: FDA-Public Use
  Company Number: None

PATIENT
  Age: 60 Year
  Sex: Female
  Weight: 62.5964 kg

DRUGS (8)
  1. ETHYOL [Suspect]
     Indication: MALIGNANT PALATE NEOPLASM
     Dosage: 500 MG SQ M-F
     Route: 058
     Dates: start: 20041006, end: 20041119
  2. ETHYOL [Suspect]
     Indication: SQUAMOUS CELL CARCINOMA
     Dosage: 500 MG SQ M-F
     Route: 058
     Dates: start: 20041006, end: 20041119
  3. DIFLUCAN [Concomitant]
  4. STOMATITIS [Concomitant]
  5. COCKTAIL [Concomitant]
  6. TYLENOL W/ CODEINE NO. 3 [Concomitant]
  7. ANZEMET [Concomitant]
  8. RADIATION [Concomitant]

REACTIONS (1)
  - RASH [None]
